FAERS Safety Report 11562392 (Version 1)
Quarter: 2015Q3

REPORT INFORMATION
  Report Type: Spontaneous
  Country: US (occurrence: US)
  Receive Date: 20150928
  Receipt Date: 20150928
  Transmission Date: 20151125
  Serious: No
  Sender: FDA-Public Use
  Company Number: US-GLAXOSMITHKLINE-US2015GSK111072

PATIENT
  Sex: Female

DRUGS (1)
  1. TANZEUM [Suspect]
     Active Substance: ALBIGLUTIDE
     Indication: TYPE 2 DIABETES MELLITUS
     Dosage: UNK, WE

REACTIONS (5)
  - Diarrhoea [Recovered/Resolved]
  - Increased appetite [Unknown]
  - Irritability [Unknown]
  - Drug dose omission [Unknown]
  - Weight decreased [Unknown]
